FAERS Safety Report 22029473 (Version 1)
Quarter: 2023Q1

REPORT INFORMATION
  Report Type: Spontaneous
  Country: US (occurrence: US)
  Receive Date: 20230223
  Receipt Date: 20230223
  Transmission Date: 20230418
  Serious: Yes (Other)
  Sender: FDA-Public Use
  Company Number: US-TAKEDA-US202033131

PATIENT
  Age: 66 Year
  Sex: Male

DRUGS (10)
  1. HUMAN IMMUNOGLOBULIN G [Suspect]
     Active Substance: HUMAN IMMUNOGLOBULIN G
     Indication: Acquired Von Willebrand^s disease
     Dosage: 1 G/KG, QD
     Route: 042
  2. HEMOFIL M [Suspect]
     Active Substance: ANTIHEMOPHILIC FACTOR HUMAN
     Indication: Acquired Von Willebrand^s disease
     Dosage: UNK
     Route: 065
  3. BORTEZOMIB [Suspect]
     Active Substance: BORTEZOMIB
     Indication: Plasma cell myeloma in remission
     Dosage: UNK
     Route: 065
  4. DEXAMETHASONE [Suspect]
     Active Substance: DEXAMETHASONE
     Indication: Plasma cell myeloma in remission
     Dosage: UNK
     Route: 065
  5. LENALIDOMIDE [Suspect]
     Active Substance: LENALIDOMIDE
     Indication: Plasma cell myeloma in remission
     Dosage: UNK
     Route: 065
  6. ASPIRIN [Concomitant]
     Active Substance: ASPIRIN
  7. AMICAR [Concomitant]
     Active Substance: AMINOCAPROIC ACID
  8. MELPHALAN [Concomitant]
     Active Substance: MELPHALAN
     Dosage: 140 MILLIGRAM/SQ. METER
  9. FILGRASTIM [Concomitant]
     Active Substance: FILGRASTIM
     Dosage: 480 MICROGRAM
  10. DDAVP [Concomitant]
     Active Substance: DESMOPRESSIN ACETATE

REACTIONS (3)
  - Drug ineffective [Unknown]
  - Drug ineffective for unapproved indication [Unknown]
  - Off label use [Unknown]
